FAERS Safety Report 4416326-1 (Version None)
Quarter: 2004Q3

REPORT INFORMATION
  Report Type: 
  Country: None (occurrence: None)
  Receive Date: 20040804
  Receipt Date: 20040804
  Transmission Date: 20050211
  Serious: Yes (Hospitalization)
  Sender: FDA-Public Use
  Company Number: None

PATIENT
  Age: 58 Year
  Sex: Male
  Weight: 90.7194 kg

DRUGS (1)
  1. AMIODARONE HCL [Suspect]
     Dosage: 400 MG PO Q DAILY SEVERAL MONTHS
     Route: 048

REACTIONS (1)
  - HYPERTHYROIDISM [None]
